FAERS Safety Report 5054133-X (Version None)
Quarter: 2006Q3

REPORT INFORMATION
  Report Type: 
  Country: None (occurrence: None)
  Receive Date: 20060713
  Receipt Date: 20060703
  Transmission Date: 20061208
  Serious: Yes (Other)
  Sender: FDA-Public Use
  Company Number: 29479

PATIENT
  Age: 70 Year
  Sex: Male

DRUGS (2)
  1. TAMBOCOR [Suspect]
     Indication: ATRIAL FIBRILLATION
     Dosage: 200 MG (100 MG, 2 IN 1 DAY (S)) ORAL
     Route: 048
     Dates: start: 20050601
  2. METOPROLOL SUCCINATE [Concomitant]

REACTIONS (3)
  - LUNG INFILTRATION [None]
  - PLEURAL EFFUSION [None]
  - PNEUMONIA [None]
